FAERS Safety Report 11272976 (Version 1)
Quarter: 2015Q3

REPORT INFORMATION
  Report Type: Report from Study
  Country: US (occurrence: US)
  Receive Date: 20150715
  Receipt Date: 20150715
  Transmission Date: 20151125
  Serious: Yes (Hospitalization)
  Sender: FDA-Public Use
  Company Number: US-AMGEN-USASL2015068214

PATIENT
  Age: 46 Year
  Sex: Female

DRUGS (1)
  1. ENBREL [Suspect]
     Active Substance: ETANERCEPT
     Indication: RHEUMATOID ARTHRITIS
     Dosage: 50 MG, ONLY TAKEN ONCE
     Route: 065
     Dates: start: 20150608, end: 20150609

REACTIONS (5)
  - Eye swelling [Not Recovered/Not Resolved]
  - Eye disorder [Not Recovered/Not Resolved]
  - Visual impairment [Not Recovered/Not Resolved]
  - Eye pain [Not Recovered/Not Resolved]
  - Photophobia [Not Recovered/Not Resolved]

NARRATIVE: CASE EVENT DATE: 201506
